FAERS Safety Report 17848696 (Version 2)
Quarter: 2020Q2

REPORT INFORMATION
  Report Type: Spontaneous
  Country: US (occurrence: US)
  Receive Date: 20200602
  Receipt Date: 20200602
  Transmission Date: 20200714
  Serious: Yes (Hospitalization)
  Sender: FDA-Public Use
  Company Number: US-CELGENEUS-USA-20200508154

PATIENT
  Age: 64 Year
  Sex: Male

DRUGS (1)
  1. ABRAXANE [Suspect]
     Active Substance: PACLITAXEL
     Indication: ADENOCARCINOMA
     Dosage: 230 MILLIGRAM
     Route: 065
     Dates: start: 20200413, end: 20200427

REACTIONS (5)
  - Diarrhoea [Recovered/Resolved]
  - Dizziness [Unknown]
  - Dehydration [Recovered/Resolved]
  - Fatigue [Unknown]
  - Haemoglobin decreased [Unknown]

NARRATIVE: CASE EVENT DATE: 20200502
